FAERS Safety Report 20835747 (Version 1)
Quarter: 2022Q2

REPORT INFORMATION
  Report Type: Spontaneous
  Country: US (occurrence: US)
  Receive Date: 20220516
  Receipt Date: 20220516
  Transmission Date: 20220721
  Serious: No
  Sender: FDA-Public Use
  Company Number: US-PFIZER INC-202200440939

PATIENT
  Age: 44 Year
  Sex: Female

DRUGS (4)
  1. XELJANZ [Suspect]
     Active Substance: TOFACITINIB CITRATE
     Indication: Colitis ulcerative
     Dosage: 10 MG, 2X/DAY
     Route: 048
     Dates: start: 2020
  2. APRISO [Concomitant]
     Active Substance: MESALAMINE
     Dosage: UNK
  3. UCERIS [Concomitant]
     Active Substance: BUDESONIDE
     Dosage: UNK
  4. UCERIS [Concomitant]
     Active Substance: BUDESONIDE
     Dosage: UNK
     Dates: start: 202202

REACTIONS (2)
  - COVID-19 [Recovered/Resolved]
  - Condition aggravated [Recovering/Resolving]

NARRATIVE: CASE EVENT DATE: 20220201
